FAERS Safety Report 5715765-6 (Version None)
Quarter: 2008Q2

REPORT INFORMATION
  Report Type: 
  Country: None (occurrence: None)
  Receive Date: 20080423
  Receipt Date: 20080423
  Transmission Date: 20081010
  Serious: No
  Sender: FDA-Public Use
  Company Number: None

PATIENT
  Age: 62 Year
  Sex: Male
  Weight: 81.6475 kg

DRUGS (2)
  1. CLONAZEPAM [Suspect]
     Indication: RESTLESS LEGS SYNDROME
     Dosage: 1 DAILY PO
     Route: 048
     Dates: start: 20001107, end: 20001112
  2. CLONAXEPAM .5MG EONL [Suspect]
     Indication: RESTLESS LEGS SYNDROME
     Dosage: 1 DAILY PO
     Route: 048
     Dates: start: 20070420, end: 20070421

REACTIONS (4)
  - DRUG DISPENSING ERROR [None]
  - DRUG EFFECT DECREASED [None]
  - ECONOMIC PROBLEM [None]
  - THERAPEUTIC RESPONSE UNEXPECTED WITH DRUG SUBSTITUTION [None]
